FAERS Safety Report 6758628-X (Version None)
Quarter: 2010Q2

REPORT INFORMATION
  Report Type: 
  Country: None (occurrence: None)
  Receive Date: 20100607
  Receipt Date: 20100527
  Transmission Date: 20101027
  Serious: Yes (Hospitalization)
  Sender: FDA-Public Use
  Company Number: NL-BAXTER-2010BH012855

PATIENT
  Age: 54 Year
  Sex: Male

DRUGS (1)
  1. TISSUCOL/TISSEEL DUO STIM3 [Suspect]
     Indication: ABDOMINAL WALL OPERATION
     Route: 065
     Dates: start: 20100321, end: 20100321

REACTIONS (1)
  - ABDOMINAL WOUND DEHISCENCE [None]
